FAERS Safety Report 7264067-8 (Version None)
Quarter: 2011Q1

REPORT INFORMATION
  Report Type: 
  Country: None (occurrence: None)
  Receive Date: 20110130
  Receipt Date: 20101229
  Transmission Date: 20110831
  Serious: No
  Sender: FDA-Public Use
  Company Number: US-ABBOTT-11P-163-0694738-00

PATIENT
  Sex: Female
  Weight: 77.18 kg

DRUGS (16)
  1. OMEPRAZOLE [Concomitant]
     Indication: GASTROOESOPHAGEAL REFLUX DISEASE
  2. CALCIUM [Concomitant]
     Indication: PRODUCT USED FOR UNKNOWN INDICATION
     Dosage: (OTC SUPPLEMENT)
  3. FOLIC ACID [Concomitant]
     Indication: PRODUCT USED FOR UNKNOWN INDICATION
  4. VITAMIN COQ10 [Concomitant]
     Indication: PRODUCT USED FOR UNKNOWN INDICATION
  5. FELODIPINE [Concomitant]
     Indication: HYPERTENSION
  6. METHOTREXATE [Concomitant]
     Indication: RHEUMATOID ARTHRITIS
     Route: 048
  7. VITOZA [Concomitant]
     Indication: DIABETES MELLITUS
     Route: 050
  8. LISINOPRIL [Concomitant]
     Indication: BLOOD CHOLESTEROL INCREASED
  9. RANITIDINE [Concomitant]
     Indication: GASTROOESOPHAGEAL REFLUX DISEASE
  10. METFORMIN [Concomitant]
     Indication: DIABETES MELLITUS
  11. VITAMIN D [Concomitant]
     Indication: PRODUCT USED FOR UNKNOWN INDICATION
  12. IRON [Concomitant]
     Indication: PRODUCT USED FOR UNKNOWN INDICATION
  13. HUMIRA [Suspect]
     Indication: RHEUMATOID ARTHRITIS
     Route: 058
  14. CRESTOR [Concomitant]
     Indication: BLOOD CHOLESTEROL INCREASED
  15. LASIX [Concomitant]
     Indication: PRODUCT USED FOR UNKNOWN INDICATION
  16. LOVAZA [Concomitant]
     Indication: BLOOD CHOLESTEROL INCREASED

REACTIONS (6)
  - RASH PAPULAR [None]
  - RASH PRURITIC [None]
  - HYPOAESTHESIA [None]
  - MADAROSIS [None]
  - PAIN OF SKIN [None]
  - PARAESTHESIA [None]
